FAERS Safety Report 10204350 (Version 2)
Quarter: 2014Q2

REPORT INFORMATION
  Report Type: Report from Study
  Country: DE (occurrence: DE)
  Receive Date: 20140529
  Receipt Date: 20140624
  Transmission Date: 20141212
  Serious: Yes (Hospitalization)
  Sender: FDA-Public Use
  Company Number: PHHY2014DE065534

PATIENT
  Age: 40 Year
  Sex: Female

DRUGS (2)
  1. EXTAVIA [Suspect]
     Indication: MULTIPLE SCLEROSIS
     Dosage: UNK UKN, BID
     Route: 058
     Dates: start: 20100101, end: 201403
  2. THYRONAJOD [Concomitant]
     Indication: HYPOTHYROIDISM
     Dosage: 75 UG, PER DAY
     Route: 048

REACTIONS (2)
  - Injection site induration [Recovered/Resolved]
  - Injection site abscess [Recovered/Resolved]
